FAERS Safety Report 10904281 (Version 1)
Quarter: 2015Q1

REPORT INFORMATION
  Report Type: Report from Study
  Country: US (occurrence: None)
  Receive Date: 20150306
  Receipt Date: 20150306
  Transmission Date: 20150721
  Serious: Yes (Hospitalization, Other)
  Sender: FDA-Public Use
  Company Number: 2015SA009819

PATIENT
  Age: 67 Year
  Sex: Female

DRUGS (16)
  1. AUBAGIO [Suspect]
     Active Substance: TERIFLUNOMIDE
     Indication: MULTIPLE SCLEROSIS
     Route: 048
     Dates: start: 20140120
  2. SEROQUEL [Concomitant]
     Active Substance: QUETIAPINE FUMARATE
  3. PREMARIN [Concomitant]
     Active Substance: ESTROGENS, CONJUGATED
  4. COPAXONE [Concomitant]
     Active Substance: GLATIRAMER ACETATE
  5. PROZAC [Concomitant]
     Active Substance: FLUOXETINE HYDROCHLORIDE
  6. AMITRIPTYLINE [Concomitant]
     Active Substance: AMITRIPTYLINE
  7. CYMBALTA [Concomitant]
     Active Substance: DULOXETINE HYDROCHLORIDE
  8. ALLEGRA [Concomitant]
     Active Substance: FEXOFENADINE HYDROCHLORIDE
  9. LASIX [Concomitant]
     Active Substance: FUROSEMIDE
  10. TECFIDERA [Concomitant]
     Active Substance: DIMETHYL FUMARATE
  11. CIPRO [Concomitant]
     Active Substance: CIPROFLOXACIN HYDROCHLORIDE
  12. TYSABRI [Concomitant]
     Active Substance: NATALIZUMAB
  13. PENICILLIN [Concomitant]
     Active Substance: PENICILLIN
  14. DIAZEPAM. [Concomitant]
     Active Substance: DIAZEPAM
  15. ARICEPT [Concomitant]
     Active Substance: DONEPEZIL HYDROCHLORIDE
  16. ZOLOFT [Concomitant]
     Active Substance: SERTRALINE HYDROCHLORIDE

REACTIONS (9)
  - Dyspepsia [None]
  - Dyspnoea [None]
  - Migraine [None]
  - Gastrooesophageal reflux disease [None]
  - Head discomfort [None]
  - Diarrhoea [None]
  - Nausea [None]
  - Wrong technique in drug usage process [None]
  - Chest pain [None]

NARRATIVE: CASE EVENT DATE: 201501
